FAERS Safety Report 6492282-X (Version None)
Quarter: 2009Q4

REPORT INFORMATION
  Report Type: 
  Country: None (occurrence: None)
  Receive Date: 20091214
  Receipt Date: 20091210
  Transmission Date: 20100525
  Serious: Yes (Death)
  Sender: FDA-Public Use
  Company Number: PHHY2009JP52968

PATIENT
  Age: 67 Year
  Sex: Male

DRUGS (3)
  1. VOLTAREN [Suspect]
     Indication: BACK PAIN
     Dosage: UNK
     Route: 054
  2. ATROVENT [Concomitant]
     Dosage: 80 UG, UNK
  3. FLUNASE [Concomitant]
     Dosage: 400 UG, UNK

REACTIONS (3)
  - BRONCHOPULMONARY ASPERGILLOSIS [None]
  - IDIOPATHIC THROMBOCYTOPENIC PURPURA [None]
  - MULTI-ORGAN FAILURE [None]
